FAERS Safety Report 4654891-X (Version None)
Quarter: 2005Q2

REPORT INFORMATION
  Report Type: 
  Country: None (occurrence: None)
  Receive Date: 20050506
  Receipt Date: 20040809
  Transmission Date: 20051028
  Serious: No
  Sender: FDA-Public Use
  Company Number: A0523190A

PATIENT
  Age: 39 Year
  Sex: Female

DRUGS (2)
  1. AMOXICILLIN [Suspect]
     Indication: SINUSITIS
     Route: 048
     Dates: end: 20040805
  2. ROBITUSSIN W/CODEINE [Concomitant]

REACTIONS (2)
  - ARTHRALGIA [None]
  - DYSSTASIA [None]
